FAERS Safety Report 18624197 (Version 1)
Quarter: 2020Q4

REPORT INFORMATION
  Report Type: Report from Study
  Country: None (occurrence: GB)
  Receive Date: 20201216
  Receipt Date: 20201216
  Transmission Date: 20210114
  Serious: Yes (Hospitalization, Disabling)
  Sender: FDA-Public Use
  Company Number: GB-ABBVIE-20P-167-3670840-00

PATIENT
  Age: 76 Year
  Sex: Male
  Weight: 76 kg

DRUGS (34)
  1. VENETOCLAX. [Suspect]
     Active Substance: VENETOCLAX
     Indication: ACUTE MYELOID LEUKAEMIA
     Route: 048
     Dates: start: 20180307, end: 20180307
  2. VENETOCLAX. [Suspect]
     Active Substance: VENETOCLAX
     Route: 048
     Dates: start: 20180309, end: 20180415
  3. TRANEXAMIC ACID. [Concomitant]
     Active Substance: TRANEXAMIC ACID
     Indication: PROPHYLAXIS
     Route: 048
     Dates: start: 20200830, end: 20200901
  4. CYTARABINE. [Suspect]
     Active Substance: CYTARABINE
     Indication: ACUTE MYELOID LEUKAEMIA
     Dosage: DAYS 1-10 OF EACH 28-DAY CYCLE
     Route: 058
     Dates: start: 20180307, end: 20201016
  5. DIFFLAM [Concomitant]
     Active Substance: BENZYDAMINE HYDROCHLORIDE
     Indication: MOUTH ULCERATION
     Dosage: MOUTHWASH
     Dates: start: 20180919
  6. FLUCONAZOLE. [Concomitant]
     Active Substance: FLUCONAZOLE
     Route: 048
     Dates: start: 20180411, end: 20190701
  7. FLUCLOXACILLIN [Concomitant]
     Active Substance: FLUCLOXACILLIN
     Indication: EAR NEOPLASM
  8. LENOGRASTIM [Concomitant]
     Active Substance: LENOGRASTIM
     Route: 058
     Dates: start: 20180704
  9. LENOGRASTIM [Concomitant]
     Active Substance: LENOGRASTIM
     Dosage: STAT
     Route: 058
     Dates: start: 20190401, end: 20190401
  10. VENETOCLAX. [Suspect]
     Active Substance: VENETOCLAX
     Dosage: DAYS 1-14 OF EACH CYCLE
     Route: 048
     Dates: start: 20200208, end: 20200515
  11. AMLODIPINE [Concomitant]
     Active Substance: AMLODIPINE BESYLATE
     Indication: HYPERTENSION
     Route: 048
     Dates: start: 2017
  12. TRANEXAMIC ACID. [Concomitant]
     Active Substance: TRANEXAMIC ACID
     Route: 048
     Dates: start: 20201104
  13. IMIQUIMOD CREAM [Concomitant]
     Active Substance: IMIQUIMOD
     Indication: NEOPLASM PROPHYLAXIS
     Dosage: 1 APPLICATION
     Route: 061
     Dates: start: 20201019
  14. VENETOCLAX. [Suspect]
     Active Substance: VENETOCLAX
     Route: 048
     Dates: start: 20190710, end: 20200207
  15. ALLOPURINOL. [Concomitant]
     Active Substance: ALLOPURINOL
     Indication: PROPHYLAXIS
     Route: 048
     Dates: start: 20180306
  16. TIMOPTOL 0.25% [Concomitant]
     Active Substance: TIMOLOL
     Indication: OPEN ANGLE GLAUCOMA
     Route: 031
     Dates: start: 2000
  17. LENOGRASTIM [Concomitant]
     Active Substance: LENOGRASTIM
     Indication: NEUTROPHIL COUNT DECREASED
     Route: 058
     Dates: start: 20180619, end: 20180622
  18. FLUCONAZOLE. [Concomitant]
     Active Substance: FLUCONAZOLE
     Indication: ANTIFUNGAL PROPHYLAXIS
     Route: 048
     Dates: start: 20200904, end: 20201103
  19. FLUCLOXACILLIN [Concomitant]
     Active Substance: FLUCLOXACILLIN
     Indication: SIALOADENITIS
     Route: 048
     Dates: start: 20190328
  20. FLUCLOXACILLIN [Concomitant]
     Active Substance: FLUCLOXACILLIN
     Indication: PERIPHERAL SWELLING
     Route: 048
     Dates: start: 20200830, end: 20200904
  21. LENOGRASTIM [Concomitant]
     Active Substance: LENOGRASTIM
     Dosage: STAT
     Route: 030
     Dates: start: 20180518, end: 20180518
  22. DIFFLAM [Concomitant]
     Active Substance: BENZYDAMINE HYDROCHLORIDE
     Indication: PROPHYLAXIS
     Route: 048
     Dates: start: 20180829, end: 20180918
  23. VALACICLOVIR [Concomitant]
     Active Substance: VALACYCLOVIR HYDROCHLORIDE
     Indication: PROPHYLAXIS
     Route: 048
     Dates: start: 20180912, end: 20181206
  24. FLUCLOXACILLIN [Concomitant]
     Active Substance: FLUCLOXACILLIN
     Indication: RASH PUSTULAR
     Route: 048
     Dates: start: 20181227
  25. VENETOCLAX. [Suspect]
     Active Substance: VENETOCLAX
     Route: 048
     Dates: start: 20180416, end: 20190625
  26. VENETOCLAX. [Suspect]
     Active Substance: VENETOCLAX
     Dosage: DAYS 1-14 OF EACH CYCLE
     Route: 048
     Dates: start: 20200604, end: 20201117
  27. FINASTERIDE. [Concomitant]
     Active Substance: FINASTERIDE
     Indication: PROSTATOMEGALY
     Route: 048
     Dates: start: 2005
  28. CHLORHEXIDINE [Concomitant]
     Active Substance: CHLORHEXIDINE
     Indication: DENTAL DISORDER PROPHYLAXIS
     Route: 002
     Dates: start: 20180306
  29. LENOGRASTIM [Concomitant]
     Active Substance: LENOGRASTIM
     Dosage: STAT
     Route: 058
     Dates: start: 20200309
  30. VENETOCLAX. [Suspect]
     Active Substance: VENETOCLAX
     Route: 048
     Dates: start: 20180308, end: 20180308
  31. VALACICLOVIR [Concomitant]
     Active Substance: VALACYCLOVIR HYDROCHLORIDE
     Indication: MOUTH ULCERATION
     Route: 048
     Dates: start: 20181207
  32. FLUCONAZOLE. [Concomitant]
     Active Substance: FLUCONAZOLE
     Route: 048
     Dates: start: 20201104
  33. FLUCLOXACILLIN [Concomitant]
     Active Substance: FLUCLOXACILLIN
     Indication: ERYTHEMA
     Route: 048
     Dates: start: 20190902, end: 20190908
  34. FLUCLOXACILLIN [Concomitant]
     Active Substance: FLUCLOXACILLIN
     Indication: EAR INFECTION

REACTIONS (1)
  - Neutropenic sepsis [Recovered/Resolved]

NARRATIVE: CASE EVENT DATE: 20201125
